FAERS Safety Report 20601894 (Version 1)
Quarter: 2022Q1

REPORT INFORMATION
  Report Type: Spontaneous
  Country: US (occurrence: US)
  Receive Date: 20220316
  Receipt Date: 20220316
  Transmission Date: 20220423
  Serious: Yes (Hospitalization, Other)
  Sender: FDA-Public Use
  Company Number: US-GYP-001036

PATIENT
  Age: 52 Year
  Sex: Male

DRUGS (15)
  1. PREDNISONE [Suspect]
     Active Substance: PREDNISONE
     Indication: Focal segmental glomerulosclerosis
  2. FLUCONAZOLE [Suspect]
     Active Substance: FLUCONAZOLE
     Indication: Disseminated coccidioidomycosis
     Route: 042
  3. AMPHOTERICIN B [Suspect]
     Active Substance: AMPHOTERICIN B
     Indication: Disseminated coccidioidomycosis
     Route: 042
  4. DEXAMETHASONE [Suspect]
     Active Substance: DEXAMETHASONE
     Indication: Disseminated coccidioidomycosis
     Dosage: DAYS 1-7,
     Route: 065
  5. FLUCONAZOLE [Suspect]
     Active Substance: FLUCONAZOLE
     Indication: Lung opacity
     Route: 042
  6. AMPHOTERICIN B [Suspect]
     Active Substance: AMPHOTERICIN B
     Indication: Lung opacity
     Route: 042
  7. DEXAMETHASONE [Suspect]
     Active Substance: DEXAMETHASONE
     Indication: Lung opacity
     Dosage: DAYS 1-7,
     Route: 065
  8. DEXAMETHASONE [Suspect]
     Active Substance: DEXAMETHASONE
     Indication: Disseminated coccidioidomycosis
     Dosage: DAYS 8-9
     Route: 065
  9. DEXAMETHASONE [Suspect]
     Active Substance: DEXAMETHASONE
     Indication: Lung opacity
     Dosage: DAYS 8-9
     Route: 065
  10. DEXAMETHASONE [Suspect]
     Active Substance: DEXAMETHASONE
     Indication: Disseminated coccidioidomycosis
     Dosage: DAYS 10-11
     Route: 065
  11. DEXAMETHASONE [Suspect]
     Active Substance: DEXAMETHASONE
     Indication: Lung opacity
     Dosage: DAYS 10-11
     Route: 065
  12. DEXAMETHASONE [Suspect]
     Active Substance: DEXAMETHASONE
     Indication: Disseminated coccidioidomycosis
     Dosage: DAYS 12-13
     Route: 065
  13. DEXAMETHASONE [Suspect]
     Active Substance: DEXAMETHASONE
     Indication: Lung opacity
     Dosage: DAYS 12-13
     Route: 065
  14. DEXAMETHASONE [Suspect]
     Active Substance: DEXAMETHASONE
     Indication: Disseminated coccidioidomycosis
     Dosage: DAYS 14-15
     Route: 065
  15. DEXAMETHASONE [Suspect]
     Active Substance: DEXAMETHASONE
     Indication: Lung opacity
     Dosage: DAYS 14-15
     Route: 065

REACTIONS (4)
  - Disseminated coccidioidomycosis [Unknown]
  - Lung opacity [Unknown]
  - Sepsis [Unknown]
  - Product use in unapproved indication [Unknown]
